FAERS Safety Report 6997701-8 (Version None)
Quarter: 2010Q3

REPORT INFORMATION
  Report Type: 
  Country: None (occurrence: None)
  Receive Date: 20100918
  Receipt Date: 20091117
  Transmission Date: 20110219
  Serious: No
  Sender: FDA-Public Use
  Company Number: US-WYE-H12191209

PATIENT
  Age: 57 Year
  Sex: Female
  Weight: 49.94 kg

DRUGS (1)
  1. ADVIL COLD AND SINUS [Suspect]
     Indication: NASOPHARYNGITIS
     Dosage: 1 CAPSULE EVERY 1 PRN
     Route: 048
     Dates: start: 20091113

REACTIONS (3)
  - DYSPHAGIA [None]
  - OROPHARYNGEAL PAIN [None]
  - PRODUCT SIZE ISSUE [None]
